FAERS Safety Report 16559063 (Version 2)
Quarter: 2019Q3

REPORT INFORMATION
  Report Type: Spontaneous
  Country: MM (occurrence: MM)
  Receive Date: 20190711
  Receipt Date: 20190716
  Transmission Date: 20191004
  Serious: Yes (Hospitalization)
  Sender: FDA-Public Use
  Company Number: MM-JNJFOC-20190633210

PATIENT
  Age: 19 Year
  Sex: Female
  Weight: 40 kg

DRUGS (12)
  1. DELAMANID [Suspect]
     Active Substance: DELAMANID
     Indication: TUBERCULOSIS
  2. CLOFAZIMINE [Suspect]
     Active Substance: CLOFAZIMINE
     Indication: TREATMENT FAILURE
     Route: 048
     Dates: start: 20190521
  3. BEDAQUILINE [Suspect]
     Active Substance: BEDAQUILINE
     Indication: TUBERCULOSIS
  4. PAS                                /00000304/ [Suspect]
     Active Substance: AMINOSALICYLATE SODIUM
     Indication: TUBERCULOSIS
  5. BEDAQUILINE [Suspect]
     Active Substance: BEDAQUILINE
     Indication: TREATMENT FAILURE
     Route: 048
     Dates: start: 20190521
  6. AMOXICLAV [Suspect]
     Active Substance: AMOXICILLIN\CLAVULANATE POTASSIUM
     Indication: TUBERCULOSIS
  7. IMIPENEM AND CILASTATIN [Suspect]
     Active Substance: CILASTATIN SODIUM\IMIPENEM
     Indication: TUBERCULOSIS
  8. AMOXICLAV [Suspect]
     Active Substance: AMOXICILLIN\CLAVULANATE POTASSIUM
     Indication: TREATMENT FAILURE
     Route: 048
     Dates: start: 20190521
  9. PAS                                /00000304/ [Suspect]
     Active Substance: AMINOSALICYLATE SODIUM
     Indication: TREATMENT FAILURE
     Route: 048
     Dates: start: 20190521
  10. IMIPENEM AND CILASTATIN [Suspect]
     Active Substance: CILASTATIN SODIUM\IMIPENEM
     Indication: TREATMENT FAILURE
     Route: 042
     Dates: start: 20190521
  11. DELAMANID [Suspect]
     Active Substance: DELAMANID
     Indication: TREATMENT FAILURE
     Route: 048
     Dates: start: 20190521
  12. CLOFAZIMINE [Suspect]
     Active Substance: CLOFAZIMINE
     Indication: TUBERCULOSIS

REACTIONS (2)
  - Hyperbilirubinaemia [Unknown]
  - Anaemia [Unknown]

NARRATIVE: CASE EVENT DATE: 201905
